FAERS Safety Report 25553877 (Version 1)
Quarter: 2025Q3

REPORT INFORMATION
  Report Type: Spontaneous
  Country: EU (occurrence: EU)
  Receive Date: 20250715
  Receipt Date: 20250715
  Transmission Date: 20251020
  Serious: Yes (Hospitalization)
  Sender: BOEHRINGER INGELHEIM
  Company Number: EU-BoehringerIngelheim-2025-BI-083054

PATIENT
  Sex: Female
  Weight: 68 kg

DRUGS (2)
  1. OFEV [Suspect]
     Active Substance: NINTEDANIB
     Indication: Idiopathic pulmonary fibrosis
     Dates: start: 201807, end: 202305
  2. OFEV [Suspect]
     Active Substance: NINTEDANIB
     Dates: start: 202306, end: 202401

REACTIONS (4)
  - Peripheral artery occlusion [Unknown]
  - Haematoma [Unknown]
  - Gastrointestinal haemorrhage [Unknown]
  - Nausea [Unknown]
